FAERS Safety Report 5210128-4 (Version None)
Quarter: 2006Q4

REPORT INFORMATION
  Report Type: 
  Country: None (occurrence: None)
  Receive Date: 20061103
  Receipt Date: 20060817
  Transmission Date: 20070319
  Serious: No
  Sender: FDA-Public Use
  Company Number: FACT0600331

PATIENT
  Sex: Female

DRUGS (2)
  1. FACTIVE [Suspect]
     Indication: RESPIRATORY TRACT INFECTION BACTERIAL
     Dosage: 320 MG, QD, ORAL
     Route: 048
  2. AZITHROMYCIN [Suspect]
     Indication: SINUSITIS
     Dates: start: 20060101, end: 20060101

REACTIONS (1)
  - RASH GENERALISED [None]
